FAERS Safety Report 25563551 (Version 1)
Quarter: 2025Q3

REPORT INFORMATION
  Report Type: Report from Study
  Country: US (occurrence: US)
  Receive Date: 20250716
  Receipt Date: 20250716
  Transmission Date: 20251020
  Serious: Yes (Other)
  Sender: HELSINN HEALTHCARE
  Company Number: US-HBP-2025US032104

PATIENT
  Age: 78 Year
  Sex: Male

DRUGS (1)
  1. VALCHLOR [Suspect]
     Active Substance: MECHLORETHAMINE
     Indication: Cutaneous T-cell lymphoma
     Dosage: UNK, QD
     Route: 061
     Dates: start: 2025, end: 202506

REACTIONS (5)
  - Neoplasm malignant [Unknown]
  - Application site pain [Unknown]
  - Application site scar [Unknown]
  - Application site erythema [Unknown]
  - Application site rash [Unknown]

NARRATIVE: CASE EVENT DATE: 20250601
